FAERS Safety Report 6646326-2 (Version None)
Quarter: 2010Q1

REPORT INFORMATION
  Report Type: 
  Country: None (occurrence: None)
  Receive Date: 20100323
  Receipt Date: 20100311
  Transmission Date: 20100710
  Serious: Yes (Other)
  Sender: FDA-Public Use
  Company Number: JP-BAYER-201010833BYL

PATIENT
  Age: 22 Year
  Sex: Female

DRUGS (5)
  1. FLUDARA [Suspect]
     Indication: STEM CELL TRANSPLANT
     Dosage: 6 DAYS
     Route: 065
  2. CYCLOSPORINE [Concomitant]
     Indication: STEM CELL TRANSPLANT
     Route: 065
  3. CYCLOSPORINE [Concomitant]
     Route: 065
  4. METHOTREXATE [Concomitant]
     Indication: PROPHYLAXIS AGAINST GRAFT VERSUS HOST DISEASE
     Route: 065
  5. CYCLOPHOSPHAMIDE [Concomitant]
     Indication: STEM CELL TRANSPLANT

REACTIONS (3)
  - ENGRAFTMENT SYNDROME [None]
  - HISTIOCYTOSIS HAEMATOPHAGIC [None]
  - VENOOCCLUSIVE LIVER DISEASE [None]
